FAERS Safety Report 22168554 (Version 1)
Quarter: 2023Q2

REPORT INFORMATION
  Report Type: Spontaneous
  Country: None (occurrence: FR)
  Receive Date: 20230403
  Receipt Date: 20230403
  Transmission Date: 20230721
  Serious: Yes (Other)
  Sender: FDA-Public Use
  Company Number: FR-B.Braun Medical Inc.-2139844

PATIENT
  Age: 53 Year
  Sex: Male

DRUGS (13)
  1. LIDOCAINE HYDROCHLORIDE AND DEXTROSE [Suspect]
     Active Substance: LIDOCAINE HYDROCHLORIDE
     Indication: Metabolic surgery
     Route: 042
     Dates: start: 20221214
  2. PROPOFOL LIPURO [Suspect]
     Active Substance: PROPOFOL
  3. MORPHINE [Suspect]
     Active Substance: MORPHINE
  4. CEFTRIAXONE SODIUM [Suspect]
     Active Substance: CEFTRIAXONE SODIUM
  5. KETOPROFEN [Suspect]
     Active Substance: KETOPROFEN
  6. CISATRACURIUM [Suspect]
     Active Substance: CISATRACURIUM
  7. ESOMEPRAZOLE. [Suspect]
     Active Substance: ESOMEPRAZOLE MAGNESIUM
  8. PHLOROGLUCINOL [Suspect]
     Active Substance: PHLOROGLUCINOL
  9. GENTAMICIN [Suspect]
     Active Substance: GENTAMICIN
  10. ACUPAN [Suspect]
     Active Substance: NEFOPAM HYDROCHLORIDE
  11. DEXAMETHASONE [Suspect]
     Active Substance: DEXAMETHASONE
  12. LOVENOX [Suspect]
     Active Substance: ENOXAPARIN SODIUM
  13. EPHEDRINE HYDROCHLORIDE [Suspect]
     Active Substance: EPHEDRINE HYDROCHLORIDE

REACTIONS (2)
  - Toxic skin eruption [Recovered/Resolved]
  - Eosinophilia [Recovered/Resolved]
